FAERS Safety Report 18065658 (Version 1)
Quarter: 2020Q3

REPORT INFORMATION
  Report Type: Spontaneous
  Country: KE (occurrence: KE)
  Receive Date: 20200724
  Receipt Date: 20200724
  Transmission Date: 20201103
  Serious: Yes (Other)
  Sender: FDA-Public Use
  Company Number: NVSC2020KE207944

PATIENT
  Age: 4 Year
  Sex: Female

DRUGS (1)
  1. COARTEM [Suspect]
     Active Substance: ARTEMETHER\LUMEFANTRINE
     Indication: MALARIA
     Dosage: 140 MG, BID
     Route: 048
     Dates: start: 20200718, end: 20200720

REACTIONS (1)
  - Epistaxis [Not Recovered/Not Resolved]
